FAERS Safety Report 17957460 (Version 1)
Quarter: 2020Q2

REPORT INFORMATION
  Report Type: Report from Study
  Country: US (occurrence: US)
  Receive Date: 20200629
  Receipt Date: 20200629
  Transmission Date: 20200714
  Serious: Yes (Hospitalization, Other)
  Sender: FDA-Public Use
  Company Number: US-GILEAD-2020-0476918

PATIENT
  Age: 22 Year
  Sex: Male

DRUGS (24)
  1. CEFUROXIME. [Concomitant]
     Active Substance: CEFUROXIME
  2. METOCLOPRAMIDE. [Concomitant]
     Active Substance: METOCLOPRAMIDE
  3. VIMPAT [Concomitant]
     Active Substance: LACOSAMIDE
  4. AZTREONAM LYSINE [Suspect]
     Active Substance: AZTREONAM LYSINE
     Indication: CHRONIC RESPIRATORY FAILURE
     Dosage: 1 VIAL VIA NEB TID
     Route: 055
     Dates: start: 20181026
  5. GLYCOPYRROLATE [GLYCOPYRRONIUM BROMIDE] [Concomitant]
     Active Substance: GLYCOPYRROLATE
  6. NEOMYCIN AND POLYMYXIN B SULFATES AND HYDROCORTISONE [Concomitant]
     Active Substance: HYDROCORTISONE\NEOMYCIN SULFATE\POLYMYXIN B SULFATE
  7. NYSTOP [Concomitant]
     Active Substance: NYSTATIN
  8. LEVETIRACETAM. [Concomitant]
     Active Substance: LEVETIRACETAM
  9. LIDOCAINE. [Concomitant]
     Active Substance: LIDOCAINE
  10. NYSTATIN. [Concomitant]
     Active Substance: NYSTATIN
  11. FUROSEMIDE. [Concomitant]
     Active Substance: FUROSEMIDE
  12. LEVALBUTEROL [LEVOSALBUTAMOL] [Concomitant]
     Active Substance: LEVALBUTEROL
  13. MONTELUKAST [Concomitant]
     Active Substance: MONTELUKAST SODIUM
  14. NEXIUM I.V. [Concomitant]
     Active Substance: ESOMEPRAZOLE SODIUM
  15. SSD [Concomitant]
     Active Substance: SILVER SULFADIAZINE
  16. TOBRAMYCIN. [Concomitant]
     Active Substance: TOBRAMYCIN
  17. AZTREONAM LYSINE [Suspect]
     Active Substance: AZTREONAM LYSINE
     Indication: HYPERCAPNIA
  18. FERROUS SULFATE. [Concomitant]
     Active Substance: FERROUS SULFATE
  19. HYOSCYAMINE. [Concomitant]
     Active Substance: HYOSCYAMINE
  20. AZITHROMYCIN ANHYDROUS. [Concomitant]
     Active Substance: AZITHROMYCIN ANHYDROUS
  21. IPRATROPIUM [Concomitant]
     Active Substance: IPRATROPIUM
  22. LORAZEPAM. [Concomitant]
     Active Substance: LORAZEPAM
  23. PHENOBARBITAL. [Concomitant]
     Active Substance: PHENOBARBITAL
  24. POLYETHYLENE GLYCOL [MACROGOL] [Concomitant]
     Active Substance: POLYETHYLENE GLYCOLS

REACTIONS (3)
  - Product use issue [Unknown]
  - Sepsis [Unknown]
  - Respiratory disorder [Unknown]
